FAERS Safety Report 11190759 (Version 2)
Quarter: 2015Q3

REPORT INFORMATION
  Report Type: Spontaneous
  Country: JP (occurrence: JP)
  Receive Date: 20150615
  Receipt Date: 20150717
  Transmission Date: 20151125
  Serious: No
  Sender: FDA-Public Use
  Company Number: JP-PFIZER INC-2015198487

PATIENT

DRUGS (1)
  1. FOSPHENYTOIN SODIUM. [Suspect]
     Active Substance: FOSPHENYTOIN SODIUM
     Dosage: UNK

REACTIONS (1)
  - Infusion site extravasation [Unknown]
